FAERS Safety Report 6640352-5 (Version None)
Quarter: 2010Q1

REPORT INFORMATION
  Report Type: 
  Country: None (occurrence: None)
  Receive Date: 20100318
  Receipt Date: 20100312
  Transmission Date: 20100710
  Serious: No
  Sender: FDA-Public Use
  Company Number: US-ASTRAZENECA-2010SE10930

PATIENT
  Sex: Female

DRUGS (1)
  1. ZOMIG-ZMT [Suspect]
     Indication: MIGRAINE
     Route: 048
     Dates: start: 20100312

REACTIONS (3)
  - DYSPNOEA [None]
  - HYPERSENSITIVITY [None]
  - PHARYNGEAL OEDEMA [None]
